FAERS Safety Report 7317000-4 (Version None)
Quarter: 2011Q1

REPORT INFORMATION
  Report Type: 
  Country: None (occurrence: None)
  Receive Date: 20110226
  Receipt Date: 20100910
  Transmission Date: 20110831
  Serious: No
  Sender: FDA-Public Use
  Company Number: US-ALLERGAN-1011742US

PATIENT

DRUGS (2)
  1. BOTOXA? [Suspect]
     Indication: TORTICOLLIS
     Dosage: 200 UNITS, SINGLE
     Route: 030
     Dates: start: 20100101
  2. BOTOXA? [Suspect]
     Dosage: UNK UNITS, SINGLE
     Dates: start: 20040101

REACTIONS (1)
  - EYELID PTOSIS [None]
